FAERS Safety Report 5763766-4 (Version None)
Quarter: 2008Q2

REPORT INFORMATION
  Report Type: 
  Country: None (occurrence: None)
  Receive Date: 20080530
  Receipt Date: 20080204
  Transmission Date: 20081010
  Serious: Yes (Other)
  Sender: FDA-Public Use
  Company Number: 167169USA

PATIENT
  Age: 59 Year
  Sex: Female
  Weight: 57.6068 kg

DRUGS (5)
  1. AZITHROMYCIN [Suspect]
     Indication: MYCOBACTERIUM AVIUM COMPLEX INFECTION
     Dosage: 250 MG (250 MG, 1 IN 1 D), ORAL
     Route: 048
     Dates: start: 20080105, end: 20080114
  2. RIFABUTIN [Suspect]
     Indication: MYCOBACTERIUM AVIUM COMPLEX INFECTION
     Dosage: 300 MG (150 MG, 2 IN 1 D)
     Dates: start: 20080105, end: 20080114
  3. CIPROFLOXACIN [Suspect]
     Indication: MYCOBACTERIUM AVIUM COMPLEX INFECTION
     Dosage: 1000 MG (500 MG, 2 IN 1 D)
     Dates: start: 20080105, end: 20080114
  4. ALENDRONATE SODIUM [Concomitant]
  5. DIPHENHYDRAMINE HYDROCHLORIDE [Concomitant]

REACTIONS (7)
  - ASTHENIA [None]
  - DEHYDRATION [None]
  - NAUSEA [None]
  - ORAL DISCOMFORT [None]
  - PLATELET COUNT DECREASED [None]
  - URTICARIA [None]
  - WHITE BLOOD CELL COUNT DECREASED [None]
